FAERS Safety Report 5697827-5 (Version None)
Quarter: 2008Q2

REPORT INFORMATION
  Report Type: 
  Country: None (occurrence: None)
  Receive Date: 20080404
  Receipt Date: 20080404
  Transmission Date: 20081010
  Serious: Yes (Death, Life-Threatening)
  Sender: FDA-Public Use
  Company Number: None

PATIENT
  Age: 76 Year
  Sex: Male
  Weight: 83.0083 kg

DRUGS (2)
  1. AMIODARONE HCL [Suspect]
     Indication: ARRHYTHMIA
     Dosage: 400MG DAILY PO  : 200MG DAILY PO
     Route: 048
     Dates: start: 20030629, end: 20051129
  2. AMIODARONE HCL [Suspect]
     Indication: ARRHYTHMIA
     Dosage: 400MG DAILY PO  : 200MG DAILY PO
     Route: 048
     Dates: start: 20051201, end: 20080323

REACTIONS (3)
  - EYE DISORDER [None]
  - LIVER DISORDER [None]
  - SKIN DISORDER [None]
